FAERS Safety Report 15673484 (Version 2)
Quarter: 2018Q4

REPORT INFORMATION
  Report Type: Report from Study
  Country: US (occurrence: US)
  Receive Date: 20181129
  Receipt Date: 20181214
  Transmission Date: 20190205
  Serious: Yes (Hospitalization)
  Sender: FDA-Public Use
  Company Number: US-ACTELION-A-NJ2016-136157

PATIENT
  Age: 40 Year
  Sex: Female
  Weight: 73.92 kg

DRUGS (6)
  1. VELETRI [Suspect]
     Active Substance: EPOPROSTENOL
     Indication: PULMONARY ARTERIAL HYPERTENSION
     Dosage: 40 NG/KG, PER MIN
     Route: 042
     Dates: start: 20121112
  2. VELETRI [Suspect]
     Active Substance: EPOPROSTENOL
     Dosage: 44 NG/KG, PER MIN
     Route: 042
  3. OPSUMIT [Concomitant]
     Active Substance: MACITENTAN
  4. VELETRI [Suspect]
     Active Substance: EPOPROSTENOL
     Dosage: 43 NG/KG, PER MIN
     Route: 042
  5. SILDENAFIL. [Concomitant]
     Active Substance: SILDENAFIL
  6. WARFARIN [Concomitant]
     Active Substance: WARFARIN

REACTIONS (18)
  - Chest pain [Unknown]
  - Pain in jaw [Unknown]
  - Flushing [Unknown]
  - Pain [Unknown]
  - Catheter site pruritus [Unknown]
  - Pulmonary arterial hypertension [Unknown]
  - Palpitations [Unknown]
  - Burning sensation [Unknown]
  - Pain in extremity [Unknown]
  - Dyspnoea [Recovering/Resolving]
  - Headache [Unknown]
  - Product dose omission [Unknown]
  - Catheter site erythema [Unknown]
  - Device infusion issue [Unknown]
  - Device failure [Unknown]
  - Dyspnoea exertional [Unknown]
  - Bone pain [Unknown]
  - Diarrhoea [Unknown]
